FAERS Safety Report 14755344 (Version 1)
Quarter: 2018Q2

REPORT INFORMATION
  Report Type: Report from Study
  Country: US (occurrence: US)
  Receive Date: 20180413
  Receipt Date: 20180413
  Transmission Date: 20180711
  Serious: No
  Sender: FDA-Public Use
  Company Number: US-ALEXION PHARMACEUTICALS INC.-A201803277

PATIENT
  Sex: Male

DRUGS (1)
  1. SOLIRIS [Suspect]
     Active Substance: ECULIZUMAB
     Indication: MYASTHENIA GRAVIS
     Dosage: 1200 MG, Q2W
     Route: 042
     Dates: start: 20171122, end: 20180307

REACTIONS (4)
  - Dysphagia [Recovering/Resolving]
  - Incorrect dose administered [Unknown]
  - Mastication disorder [Not Recovered/Not Resolved]
  - Dysphonia [Not Recovered/Not Resolved]
